FAERS Safety Report 6965609-X (Version None)
Quarter: 2010Q3

REPORT INFORMATION
  Report Type: 
  Country: None (occurrence: None)
  Receive Date: 20100903
  Receipt Date: 20100818
  Transmission Date: 20110219
  Serious: Yes (Other)
  Sender: FDA-Public Use
  Company Number: US-BAYER-201036980GPV

PATIENT

DRUGS (2)
  1. DACARBAZINE [Suspect]
     Indication: METASTATIC MALIGNANT MELANOMA
     Dosage: OVER 30 MINUTES DAILY FOR 5 DAYS EVERY 3 WEEKS
  2. IMEXON (AMPLIMEXON) [Suspect]
     Indication: METASTATIC MALIGNANT MELANOMA
     Dosage: 30- TO 45-MINUTE INFUSION DAILY FOR 5 CONSECUTIVE DAYS EVERY 3 WEEKS

REACTIONS (1)
  - HEPATORENAL FAILURE [None]
